FAERS Safety Report 17112871 (Version 1)
Quarter: 2019Q4

REPORT INFORMATION
  Report Type: Spontaneous
  Country: FI (occurrence: FI)
  Receive Date: 20191204
  Receipt Date: 20191204
  Transmission Date: 20200122
  Serious: Yes (Other)
  Sender: FDA-Public Use
  Company Number: FI-ANIPHARMA-2019-FI-000009

PATIENT
  Age: 56 Year
  Sex: Female

DRUGS (3)
  1. LITALGIN [Concomitant]
     Active Substance: PITOFENONE
     Dosage: UNK
     Route: 065
  2. CANDESARTAN. [Suspect]
     Active Substance: CANDESARTAN
     Indication: PRODUCT USED FOR UNKNOWN INDICATION
     Dosage: UNK
     Route: 048
     Dates: end: 2019
  3. KETOMEX [Concomitant]
     Dosage: UNK
     Route: 065

REACTIONS (1)
  - Vitreous detachment [Unknown]

NARRATIVE: CASE EVENT DATE: 201901
